FAERS Safety Report 8207193-9 (Version None)
Quarter: 2012Q1

REPORT INFORMATION
  Report Type: 
  Country: None (occurrence: None)
  Receive Date: 20120314
  Receipt Date: 20120312
  Transmission Date: 20120608
  Serious: No
  Sender: FDA-Public Use
  Company Number: US-PFIZER INC-2012065970

PATIENT
  Sex: Female
  Weight: 88.435 kg

DRUGS (2)
  1. CELEBREX [Suspect]
     Indication: MENISCUS LESION
     Dosage: 200 MG, DAILY
     Route: 048
     Dates: start: 20120308
  2. VALACICLOVIR [Concomitant]
     Indication: HERPES VIRUS INFECTION
     Dosage: UNK

REACTIONS (1)
  - JOINT SWELLING [None]
